FAERS Safety Report 18724136 (Version 1)
Quarter: 2021Q1

REPORT INFORMATION
  Report Type: Report from Study
  Country: CA (occurrence: CA)
  Receive Date: 20210111
  Receipt Date: 20210111
  Transmission Date: 20210419
  Serious: Yes (Hospitalization)
  Sender: FDA-Public Use
  Company Number: CA-TAKEDA-CA202010770

PATIENT

DRUGS (3)
  1. GAMMAGARD LIQUID [Suspect]
     Active Substance: HUMAN IMMUNOGLOBULIN G
     Indication: PRIMARY IMMUNODEFICIENCY SYNDROME
     Dosage: 10 GRAM, 1X/WEEK
     Route: 058
     Dates: start: 20180424
  2. GAMMAGARD LIQUID [Suspect]
     Active Substance: HUMAN IMMUNOGLOBULIN G
     Dosage: 10 GRAM, 1X/WEEK
     Route: 058
     Dates: start: 20200603
  3. METHOTREXATE. [Concomitant]
     Active Substance: METHOTREXATE
     Indication: PRODUCT USED FOR UNKNOWN INDICATION

REACTIONS (6)
  - Influenza [Recovered/Resolved]
  - Cough [Recovered/Resolved]
  - Headache [Unknown]
  - Pulmonary mass [Unknown]
  - C-reactive protein decreased [Unknown]
  - Knee arthroplasty [Recovering/Resolving]

NARRATIVE: CASE EVENT DATE: 202002
